FAERS Safety Report 11866999 (Version 1)
Quarter: 2015Q4

REPORT INFORMATION
  Report Type: Spontaneous
  Country: US (occurrence: US)
  Receive Date: 20151224
  Receipt Date: 20151224
  Transmission Date: 20160305
  Serious: Yes (Death, Hospitalization)
  Sender: FDA-Public Use
  Company Number: US-WEST-WARD PHARMACEUTICALS CORP.-US-H14001-15-02158

PATIENT
  Age: 48 Year
  Sex: Male
  Weight: 40.86 kg

DRUGS (25)
  1. MORPHINE [Suspect]
     Active Substance: MORPHINE
     Route: 042
     Dates: start: 201511
  2. INCB024360 [Suspect]
     Active Substance: EPACADOSTAT
     Indication: SQUAMOUS CELL CARCINOMA OF HEAD AND NECK
     Dates: start: 20150623
  3. MORPHINE [Suspect]
     Active Substance: MORPHINE
     Indication: ANALGESIC THERAPY
     Route: 065
     Dates: start: 20150702
  4. MIRACLE MOUTHWASH [Concomitant]
     Indication: PRODUCT USED FOR UNKNOWN INDICATION
     Route: 065
     Dates: start: 201510, end: 20151026
  5. TYLENOL [Concomitant]
     Active Substance: ACETAMINOPHEN
     Route: 065
     Dates: start: 20151113
  6. MORPHINE [Suspect]
     Active Substance: MORPHINE
     Route: 065
     Dates: start: 201510, end: 20151026
  7. HEPARIN [Concomitant]
     Active Substance: HEPARIN SODIUM
     Indication: PRODUCT USED FOR UNKNOWN INDICATION
     Route: 058
     Dates: start: 20151113
  8. SODIUM BICARBONATE. [Concomitant]
     Active Substance: SODIUM BICARBONATE
     Indication: PRODUCT USED FOR UNKNOWN INDICATION
     Route: 048
     Dates: start: 201510, end: 20151026
  9. SODIUM CHLORIDE. [Concomitant]
     Active Substance: SODIUM CHLORIDE
     Route: 042
     Dates: start: 20151113
  10. MK-3475 [Suspect]
     Active Substance: PEMBROLIZUMAB
     Indication: SQUAMOUS CELL CARCINOMA OF HEAD AND NECK
     Route: 042
     Dates: start: 20150623
  11. COLACE [Concomitant]
     Active Substance: DOCUSATE SODIUM
     Indication: PRODUCT USED FOR UNKNOWN INDICATION
     Dates: start: 201510, end: 20151026
  12. ZOFRAN [Concomitant]
     Active Substance: ONDANSETRON HYDROCHLORIDE
     Indication: PRODUCT USED FOR UNKNOWN INDICATION
     Route: 042
     Dates: start: 201510, end: 20151026
  13. FLAGYL [Concomitant]
     Active Substance: METRONIDAZOLE\METRONIDAZOLE HYDROCHLORIDE
     Indication: PRODUCT USED FOR UNKNOWN INDICATION
     Route: 042
     Dates: start: 20151113
  14. ATIVAN [Suspect]
     Active Substance: LORAZEPAM
     Route: 042
     Dates: start: 20151113
  15. MAGNESIUM SULFATE IN 5% DEXTROSE WATER SOLUTION [Concomitant]
     Indication: PRODUCT USED FOR UNKNOWN INDICATION
     Dosage: 1 G/100 ML
     Route: 042
     Dates: start: 201510, end: 20151026
  16. PROTONIX [Concomitant]
     Active Substance: PANTOPRAZOLE SODIUM
     Indication: PRODUCT USED FOR UNKNOWN INDICATION
     Route: 042
     Dates: start: 201510, end: 20151026
  17. SODIUM CHLORIDE. [Concomitant]
     Active Substance: SODIUM CHLORIDE
     Route: 065
     Dates: start: 201510, end: 20151026
  18. ZOFRAN [Concomitant]
     Active Substance: ONDANSETRON HYDROCHLORIDE
     Route: 042
     Dates: start: 20151113
  19. ATIVAN [Suspect]
     Active Substance: LORAZEPAM
     Indication: PRODUCT USED FOR UNKNOWN INDICATION
     Dates: start: 201510, end: 20151026
  20. LEVAQUIN [Concomitant]
     Active Substance: LEVOFLOXACIN
     Indication: PRODUCT USED FOR UNKNOWN INDICATION
     Route: 065
     Dates: start: 201510
  21. UNASYN [Concomitant]
     Active Substance: AMPICILLIN SODIUM\SULBACTAM SODIUM
     Indication: PRODUCT USED FOR UNKNOWN INDICATION
     Route: 042
     Dates: start: 201510, end: 20151026
  22. KLOR-CON [Concomitant]
     Active Substance: POTASSIUM CHLORIDE
     Indication: PRODUCT USED FOR UNKNOWN INDICATION
     Dates: start: 201510, end: 20151026
  23. SODIUM CHLORIDE. [Concomitant]
     Active Substance: SODIUM CHLORIDE
     Indication: PRODUCT USED FOR UNKNOWN INDICATION
     Route: 042
     Dates: start: 201510, end: 20151026
  24. TYLENOL [Concomitant]
     Active Substance: ACETAMINOPHEN
     Indication: PRODUCT USED FOR UNKNOWN INDICATION
     Route: 065
     Dates: start: 201510, end: 20151026
  25. NEURONTIN [Concomitant]
     Active Substance: GABAPENTIN
     Indication: PRODUCT USED FOR UNKNOWN INDICATION
     Dates: start: 201510, end: 20151026

REACTIONS (16)
  - Hypoxia [Recovered/Resolved]
  - Pneumonia aspiration [Unknown]
  - Tracheal haemorrhage [Fatal]
  - Haematemesis [Fatal]
  - Unresponsive to stimuli [Recovered/Resolved]
  - Computerised tomogram thorax abnormal [Unknown]
  - Pulseless electrical activity [Fatal]
  - Bradycardia [Fatal]
  - Lethargy [Recovered/Resolved]
  - Mental status changes [Recovered/Resolved]
  - Pyrexia [Unknown]
  - Incorrect route of drug administration [Unknown]
  - Tumour pain [Recovered/Resolved]
  - Cardiac arrest [Fatal]
  - Failure to thrive [Unknown]
  - Toxicity to various agents [Unknown]

NARRATIVE: CASE EVENT DATE: 20151025
